FAERS Safety Report 13890214 (Version 1)
Quarter: 2017Q3

REPORT INFORMATION
  Report Type: Spontaneous
  Country: US (occurrence: None)
  Receive Date: 20170816
  Receipt Date: 20170816
  Transmission Date: 20171127
  Serious: Yes (Hospitalization)
  Sender: FDA-Public Use
  Company Number: None

PATIENT
  Age: 83 Year
  Sex: Female

DRUGS (19)
  1. IMODIUM AD [Concomitant]
     Active Substance: LOPERAMIDE HYDROCHLORIDE
  2. LASIX [Concomitant]
     Active Substance: FUROSEMIDE
  3. IBRANCE [Suspect]
     Active Substance: PALBOCICLIB
     Indication: BREAST CANCER
     Dosage: 125MG  DS 1-21 OF  28D CYC   QD DS 1-21  PO
     Route: 048
     Dates: start: 20170304
  4. OMEGA III [Concomitant]
  5. ROCEPHIN [Concomitant]
     Active Substance: CEFTRIAXONE SODIUM
  6. VIT B50 [Concomitant]
  7. TRIAMCINOLON [Concomitant]
  8. NIACIN ER [Concomitant]
     Active Substance: NIACIN
  9. LISINOPRIL. [Concomitant]
     Active Substance: LISINOPRIL
  10. TURMERIC [Concomitant]
     Active Substance: HERBALS\TURMERIC
  11. WOMENS ONE A DAY [Concomitant]
  12. BIOTIN [Concomitant]
     Active Substance: BIOTIN
  13. COQ10 [Concomitant]
     Active Substance: UBIDECARENONE
  14. HYDRALAZINE [Concomitant]
     Active Substance: HYDRALAZINE HYDROCHLORIDE
  15. MUCINEX [Concomitant]
     Active Substance: GUAIFENESIN
  16. OSTEO [Concomitant]
     Active Substance: CHONDROITIN SULFATE (BOVINE)\GLUCOSAMINE SULFATE
  17. DEEP BLUE GEL RELIEF [Concomitant]
  18. FEMARA [Concomitant]
     Active Substance: LETROZOLE
  19. INTESTINEX [Concomitant]

REACTIONS (5)
  - Feeling abnormal [None]
  - Cystitis [None]
  - Dizziness [None]
  - Intestinal obstruction [None]
  - Dehydration [None]

NARRATIVE: CASE EVENT DATE: 20170807
